FAERS Safety Report 15802222 (Version 1)
Quarter: 2019Q1

REPORT INFORMATION
  Report Type: Spontaneous
  Country: US (occurrence: US)
  Receive Date: 20190108
  Receipt Date: 20190108
  Transmission Date: 20190417
  Serious: No
  Sender: FDA-Public Use
  Company Number: None

PATIENT
  Sex: Male

DRUGS (1)
  1. DILTIAZEM LONG ACTING [Suspect]
     Active Substance: DILTIAZEM

REACTIONS (2)
  - Feeling abnormal [None]
  - Dizziness [None]
